FAERS Safety Report 10077157 (Version 1)
Quarter: 2014Q2

REPORT INFORMATION
  Report Type: Spontaneous
  Country: IN (occurrence: IN)
  Receive Date: 20140414
  Receipt Date: 20140414
  Transmission Date: 20141212
  Serious: Yes (Hospitalization)
  Sender: FDA-Public Use
  Company Number: PHHY2014IN040359

PATIENT
  Age: 75 Year
  Sex: Female

DRUGS (3)
  1. IMIPRAMINE [Suspect]
     Indication: MENTAL DISORDER
     Dosage: 25 MG, PER DAY
  2. IMIPRAMINE [Suspect]
     Indication: SLEEP DISORDER
  3. CORTICOSTEROIDS [Concomitant]

REACTIONS (8)
  - Interstitial lung disease [Unknown]
  - Dyspnoea [Unknown]
  - Productive cough [Unknown]
  - White blood cell count increased [Unknown]
  - Red blood cell sedimentation rate increased [Unknown]
  - Restrictive pulmonary disease [Unknown]
  - Rales [Unknown]
  - Pleural fibrosis [Unknown]
